FAERS Safety Report 6999727-7 (Version None)
Quarter: 2010Q3

REPORT INFORMATION
  Report Type: 
  Country: None (occurrence: None)
  Receive Date: 20100920
  Receipt Date: 20100414
  Transmission Date: 20110219
  Serious: No
  Sender: FDA-Public Use
  Company Number: US-ASTRAZENECA-2010SE16586

PATIENT
  Age: 10819 Day
  Sex: Female
  Weight: 61.2 kg

DRUGS (1)
  1. SEROQUEL [Suspect]
     Indication: BIPOLAR DISORDER
     Route: 048
     Dates: start: 20090101

REACTIONS (2)
  - DRUG DOSE OMISSION [None]
  - WITHDRAWAL SYNDROME [None]
